FAERS Safety Report 7932716-4 (Version None)
Quarter: 2011Q4

REPORT INFORMATION
  Report Type: 
  Country: None (occurrence: None)
  Receive Date: 20111122
  Receipt Date: 20111110
  Transmission Date: 20120403
  Serious: Yes (Other)
  Sender: FDA-Public Use
  Company Number: US-BAYER-201038972NA

PATIENT
  Age: 21 Year
  Sex: Female
  Weight: 88.435 kg

DRUGS (5)
  1. ANTIVERT [Concomitant]
  2. YASMIN [Suspect]
     Indication: MENSTRUATION IRREGULAR
     Route: 048
     Dates: start: 20060801
  3. IBUPROFEN (ADVIL) [Concomitant]
  4. MOTRIN [Concomitant]
  5. ACIPHEX [Concomitant]
     Dosage: 20 MG, QD
     Route: 048
     Dates: start: 20061114

REACTIONS (2)
  - GALLBLADDER NON-FUNCTIONING [None]
  - CHOLECYSTITIS CHRONIC [None]
